FAERS Safety Report 7629924-9 (Version None)
Quarter: 2011Q3

REPORT INFORMATION
  Report Type: 
  Country: None (occurrence: None)
  Receive Date: 20110722
  Receipt Date: 20110201
  Transmission Date: 20111222
  Serious: No
  Sender: FDA-Public Use
  Company Number: US-BAYER-2011-013738

PATIENT
  Sex: Female

DRUGS (2)
  1. ALCOWIPES [Suspect]
     Indication: RELAPSING-REMITTING MULTIPLE SCLEROSIS
     Dosage: UNK
  2. BETASERON [Suspect]
     Indication: RELAPSING-REMITTING MULTIPLE SCLEROSIS
     Dosage: UNK

REACTIONS (2)
  - INJECTION SITE SCAB [None]
  - INJECTION SITE ERYTHEMA [None]
